FAERS Safety Report 4995045-7 (Version None)
Quarter: 2006Q2

REPORT INFORMATION
  Report Type: 
  Country: None (occurrence: None)
  Receive Date: 20060508
  Receipt Date: 20060426
  Transmission Date: 20061013
  Serious: Yes (Hospitalization)
  Sender: FDA-Public Use
  Company Number: FR-GLAXOSMITHKLINE-B0421854A

PATIENT
  Age: 82 Year
  Sex: Female
  Weight: 65 kg

DRUGS (7)
  1. PAROXETINE HYDROCHLORIDE [Suspect]
     Dosage: 20MG IN THE MORNING
     Route: 048
  2. TAMOXIFEN CITRATE [Suspect]
     Indication: BREAST CANCER
     Dosage: 20MG IN THE MORNING
     Route: 048
  3. IMOVANE [Suspect]
     Indication: SLEEP DISORDER
     Dosage: 7.5MG AT NIGHT
     Route: 048
  4. FOZITEC [Suspect]
     Indication: ESSENTIAL HYPERTENSION
     Dosage: 1UNIT IN THE MORNING
     Route: 048
  5. REMINYL [Suspect]
     Indication: DEMENTIA ALZHEIMER'S TYPE
     Dosage: 12MG TWICE PER DAY
     Route: 048
  6. RISPERDAL [Suspect]
     Dosage: .25MG AT NIGHT
     Route: 048
  7. SERESTA [Suspect]
     Dosage: 10MG TWICE PER DAY
     Route: 048

REACTIONS (4)
  - FACE OEDEMA [None]
  - MACROGLOSSIA [None]
  - PAINFUL RESPIRATION [None]
  - TONGUE OEDEMA [None]
